FAERS Safety Report 6233734-7 (Version None)
Quarter: 2009Q2

REPORT INFORMATION
  Report Type: 
  Country: None (occurrence: None)
  Receive Date: 20090618
  Receipt Date: 20090610
  Transmission Date: 20091009
  Serious: Yes (Other)
  Sender: FDA-Public Use
  Company Number: FR-ABBOTT-09P-056-0579448-00

PATIENT
  Sex: Male

DRUGS (1)
  1. ENANTONE LP 11.25 MG PREP INJECTION [Suspect]
     Indication: PROSTATE CANCER
     Route: 030
     Dates: start: 20070101

REACTIONS (1)
  - ANAPHYLACTOID REACTION [None]
